FAERS Safety Report 8823422 (Version 2)
Quarter: 2012Q4

REPORT INFORMATION
  Report Type: 
  Country: US (occurrence: US)
  Receive Date: 20121003
  Receipt Date: 20121113
  Transmission Date: 20130627
  Serious: Yes (Hospitalization)
  Sender: FDA-Public Use
  Company Number: US-ACTELION-A-NJ2012-72059

PATIENT
  Age: 45 Year
  Sex: Male

DRUGS (4)
  1. VELETRI [Suspect]
     Indication: PULMONARY ARTERIAL HYPERTENSION
     Dosage: 15 ng/kg, per min
     Route: 041
     Dates: start: 20101208
  2. ZIDOVUDINA [Concomitant]
  3. LAMIVUDINA [Concomitant]
  4. EFAVIRENZ [Concomitant]

REACTIONS (1)
  - Pancreatitis [Recovered/Resolved]
